FAERS Safety Report 8966024 (Version 2)
Quarter: 2013Q1

REPORT INFORMATION
  Report Type: Spontaneous
  Country: US (occurrence: US)
  Receive Date: 20121214
  Receipt Date: 20130108
  Transmission Date: 20140127
  Serious: Yes (Other)
  Sender: FDA-Public Use
  Company Number: CHPA2012US024698

PATIENT
  Age: 62 Year
  Sex: Female

DRUGS (1)
  1. GAS-X EXTRA STRENGTH SOFTGELS [Suspect]
     Indication: ULCER
     Dosage: 2 PILLS AS NEEDED
     Route: 048
     Dates: start: 201206

REACTIONS (2)
  - Staphylococcal infection [Recovered/Resolved]
  - Off label use [Unknown]
